FAERS Safety Report 9169328 (Version 1)
Quarter: 2013Q1

REPORT INFORMATION
  Report Type: Spontaneous
  Country: US (occurrence: US)
  Receive Date: 20130318
  Receipt Date: 20130318
  Transmission Date: 20140127
  Serious: No
  Sender: FDA-Public Use
  Company Number: US-BAYER-2013-030563

PATIENT
  Sex: 0

DRUGS (1)
  1. AVELOX I.V. [Suspect]
     Dosage: 400 MG, QD
     Route: 042

REACTIONS (1)
  - Infusion site extravasation [Not Recovered/Not Resolved]
